FAERS Safety Report 21488160 (Version 1)
Quarter: 2022Q4

REPORT INFORMATION
  Report Type: Spontaneous
  Country: US (occurrence: None)
  Receive Date: 20221020
  Receipt Date: 20221020
  Transmission Date: 20230113
  Serious: Yes (Hospitalization)
  Sender: FDA-Public Use
  Company Number: None

PATIENT
  Age: 70 Year
  Sex: Male
  Weight: 71.1 kg

DRUGS (2)
  1. CARBOPLATIN [Suspect]
     Active Substance: CARBOPLATIN
     Dates: end: 20220720
  2. TAXOL [Suspect]
     Active Substance: PACLITAXEL
     Dates: end: 20220720

REACTIONS (4)
  - Pyrexia [None]
  - Tachycardia [None]
  - Pneumonia [None]
  - Bacterial infection [None]

NARRATIVE: CASE EVENT DATE: 20221008
